FAERS Safety Report 5445099-9 (Version None)
Quarter: 2007Q3

REPORT INFORMATION
  Report Type: 
  Country: None (occurrence: None)
  Receive Date: 20070906
  Receipt Date: 20070827
  Transmission Date: 20080115
  Serious: Yes (Hospitalization, Other)
  Sender: FDA-Public Use
  Company Number: CZ-PFIZER INC-2007065330

PATIENT
  Age: 31 Year
  Sex: Female

DRUGS (5)
  1. SOLU-MEDROL [Suspect]
     Indication: DERMATOMYOSITIS
     Dosage: DAILY DOSE:48MG
  2. PREDNISONE TAB [Suspect]
     Dosage: DAILY DOSE:60MG
  3. METHOTREXATE [Suspect]
  4. ALENDRONATE SODIUM [Concomitant]
  5. RISEDRONATE SODIUM [Concomitant]

REACTIONS (13)
  - ASTHENIA [None]
  - DYSPNOEA EXERTIONAL [None]
  - FATIGUE [None]
  - HYPERCHOLESTEROLAEMIA [None]
  - LIVER DISORDER [None]
  - MUSCULAR WEAKNESS [None]
  - OSTEOPOROSIS [None]
  - PANCYTOPENIA [None]
  - PITUITARY-DEPENDENT CUSHING'S SYNDROME [None]
  - POLYARTHRITIS [None]
  - SKIN LESION [None]
  - WEIGHT DECREASED [None]
  - WEIGHT INCREASED [None]
